FAERS Safety Report 7802364-5 (Version None)
Quarter: 2011Q4

REPORT INFORMATION
  Report Type: 
  Country: None (occurrence: None)
  Receive Date: 20111007
  Receipt Date: 20111007
  Transmission Date: 20120403
  Serious: Yes (Other)
  Sender: FDA-Public Use
  Company Number: US-GLAXOSMITHKLINE-A0921636A

PATIENT
  Age: 60 Year
  Sex: Female
  Weight: 94.1 kg

DRUGS (4)
  1. LEVOTHYROXINE SODIUM [Concomitant]
  2. ALLI [Suspect]
     Indication: WEIGHT LOSS DIET
     Route: 048
     Dates: end: 20110328
  3. PANTOPRAZOLE [Concomitant]
  4. EVISTA [Concomitant]

REACTIONS (3)
  - LIVER INJURY [None]
  - HEPATIC ENZYME INCREASED [None]
  - GALLBLADDER POLYP [None]
